FAERS Safety Report 9781388 (Version 1)
Quarter: 2013Q4

REPORT INFORMATION
  Report Type: Spontaneous
  Country: US (occurrence: None)
  Receive Date: 20131223
  Receipt Date: 20131223
  Transmission Date: 20140711
  Serious: Yes (Life-Threatening, Hospitalization)
  Sender: FDA-Public Use
  Company Number: None

PATIENT
  Age: 64 Year
  Sex: Male
  Weight: 69.4 kg

DRUGS (2)
  1. WARFARIN [Suspect]
     Indication: PERIPHERAL VASCULAR DISORDER
     Dosage: MG PO
     Route: 048
     Dates: start: 20100915, end: 20131010
  2. ASPIRIN [Suspect]
     Indication: PERIPHERAL VASCULAR DISORDER
     Dosage: MG EVERY DAY PO
     Route: 048
     Dates: start: 20090614, end: 20131010

REACTIONS (12)
  - Pyrexia [None]
  - Productive cough [None]
  - Haemoptysis [None]
  - Abdominal pain [None]
  - International normalised ratio increased [None]
  - Subdural haematoma [None]
  - Haematemesis [None]
  - Decreased appetite [None]
  - Bronchitis [None]
  - Device related infection [None]
  - Nausea [None]
  - Vomiting [None]
